FAERS Safety Report 9553479 (Version 3)
Quarter: 2014Q1

REPORT INFORMATION
  Report Type: Report from Study
  Country: US (occurrence: US)
  Receive Date: 20130925
  Receipt Date: 20140127
  Transmission Date: 20141002
  Serious: Yes (Other)
  Sender: FDA-Public Use
  Company Number: US-ABBVIE-13P-163-1143650-00

PATIENT
  Age: 24 Year
  Sex: Female
  Weight: 61.29 kg

DRUGS (6)
  1. HUMIRA [Suspect]
     Indication: PSORIASIS
     Route: 058
     Dates: start: 201304, end: 201308
  2. TRAZODONE [Concomitant]
     Indication: PRODUCT USED FOR UNKNOWN INDICATION
  3. CONCERTA ER [Concomitant]
     Indication: PRODUCT USED FOR UNKNOWN INDICATION
  4. ZYRTEC [Concomitant]
     Indication: PRODUCT USED FOR UNKNOWN INDICATION
  5. MONODOX [Concomitant]
     Dates: start: 201307
  6. CHANTIX [Concomitant]
     Indication: SMOKING CESSATION THERAPY
     Dates: start: 20130318

REACTIONS (2)
  - Lymphadenopathy [Unknown]
  - Lymphadenopathy [Unknown]
